FAERS Safety Report 8475885-2 (Version None)
Quarter: 2012Q2

REPORT INFORMATION
  Report Type: 
  Country: None (occurrence: None)
  Receive Date: 20120628
  Receipt Date: 20120627
  Transmission Date: 20120825
  Serious: Yes (Other)
  Sender: FDA-Public Use
  Company Number: CN-BAYER-2012-063589

PATIENT
  Age: 60 Year
  Sex: Male

DRUGS (9)
  1. CIPROFLOXACIN [Suspect]
     Dosage: 200 MG, BID
     Route: 041
     Dates: start: 20110823, end: 20110824
  2. BUDESONIDE [Concomitant]
  3. CEFEPIME [Concomitant]
     Dosage: 1 G, BID
     Route: 041
     Dates: start: 20110824
  4. AMBROXOL [Concomitant]
     Dosage: 60 MG, BID
     Route: 042
     Dates: start: 20110812
  5. METHYLPREDNISOLONE [Concomitant]
     Dosage: 40 MG, UNK
     Route: 042
     Dates: start: 20110812
  6. CEFOPERAZONE SHUBATAN [Concomitant]
     Dosage: 1.5 G, BID
     Route: 041
     Dates: start: 20110812, end: 20110823
  7. DOXOFYLLINE [Concomitant]
     Dosage: 200 MG, BID
     Route: 041
  8. FLUCONAZOLE [Concomitant]
     Indication: INFECTION
     Dosage: 400 MG, UNK
     Route: 042
     Dates: start: 20110815
  9. ALBUTEROL SULATE [Concomitant]

REACTIONS (5)
  - EPILEPSY [None]
  - EYE MOVEMENT DISORDER [None]
  - MUSCLE SPASMS [None]
  - TRISMUS [None]
  - DEPRESSED LEVEL OF CONSCIOUSNESS [None]
